FAERS Safety Report 7270859-1 (Version None)
Quarter: 2011Q1

REPORT INFORMATION
  Report Type: 
  Country: None (occurrence: None)
  Receive Date: 20110125
  Receipt Date: 20110125
  Transmission Date: 20110831
  Serious: Yes (Other)
  Sender: FDA-Public Use
  Company Number: None

PATIENT
  Sex: Male

DRUGS (2)
  1. LEXAPRO [Suspect]
     Indication: AFFECTIVE DISORDER
     Dosage: 10MG QAM PO
     Route: 048
     Dates: start: 20101124, end: 20101129
  2. HALOPERIDOL [Suspect]
     Dosage: 5MG, STAT,IV
     Route: 042
     Dates: start: 20101124, end: 20101224

REACTIONS (2)
  - AKATHISIA [None]
  - DYSTONIA [None]
